FAERS Safety Report 6386154-9 (Version None)
Quarter: 2009Q4

REPORT INFORMATION
  Report Type: 
  Country: None (occurrence: None)
  Receive Date: 20091002
  Receipt Date: 20081231
  Transmission Date: 20100525
  Serious: No
  Sender: FDA-Public Use
  Company Number: US-ASTRAZENECA-2008UW28982

PATIENT
  Age: 54 Year
  Sex: Female
  Weight: 79.4 kg

DRUGS (7)
  1. ARIMIDEX [Suspect]
     Indication: BREAST CANCER
     Dosage: UNKNOWN
     Route: 048
     Dates: start: 20060101
  2. CHEMOTHERAPY [Suspect]
     Dosage: UNKNOWN
     Route: 065
  3. LISINOPRIL AND HYDROCHLOROTHIAZIDE [Concomitant]
     Route: 048
  4. MULTI-VITAMINS [Concomitant]
  5. VITAMIN E [Concomitant]
  6. ASCORBIC ACID [Concomitant]
  7. VIACTIVE [Concomitant]

REACTIONS (4)
  - BLOOD PRESSURE INCREASED [None]
  - DRUG ADMINISTRATION ERROR [None]
  - GLUCOSE TOLERANCE IMPAIRED [None]
  - WEIGHT INCREASED [None]
